FAERS Safety Report 6346674-X (Version None)
Quarter: 2009Q3

REPORT INFORMATION
  Report Type: 
  Country: None (occurrence: None)
  Receive Date: 20090904
  Receipt Date: 20090824
  Transmission Date: 20100115
  Serious: Yes (Hospitalization)
  Sender: FDA-Public Use
  Company Number: 2009AP003450

PATIENT
  Age: 72 Year
  Sex: Female

DRUGS (2)
  1. RISPERIDONE [Suspect]
  2. PROCYCLIDINE HYDROCHLORIDE 2MG TAB [Concomitant]

REACTIONS (3)
  - FALL [None]
  - FEMORAL NECK FRACTURE [None]
  - PARKINSONISM [None]
